FAERS Safety Report 16290420 (Version 1)
Quarter: 2019Q2

REPORT INFORMATION
  Report Type: Spontaneous
  Country: FR (occurrence: FR)
  Receive Date: 20190509
  Receipt Date: 20190509
  Transmission Date: 20190711
  Serious: Yes (Hospitalization)
  Sender: FDA-Public Use
  Company Number: FR-CLINIGEN GROUP PLC/ CLINIGEN HEALTHCARE LTD-FR-CLGN-19-0012745

PATIENT
  Age: 1 Year
  Sex: Female
  Weight: 10 kg

DRUGS (1)
  1. FOSCAVIR [Suspect]
     Active Substance: FOSCARNET SODIUM
     Indication: CYTOMEGALOVIRUS VIRAEMIA
     Route: 042
     Dates: start: 20190227, end: 20190410

REACTIONS (3)
  - Renal failure [Not Recovered/Not Resolved]
  - Off label use [Unknown]
  - Aplastic anaemia [Recovering/Resolving]

NARRATIVE: CASE EVENT DATE: 20190309
